FAERS Safety Report 23226899 (Version 1)
Quarter: 2023Q4

REPORT INFORMATION
  Report Type: Spontaneous
  Country: DE (occurrence: None)
  Receive Date: 20231124
  Receipt Date: 20231124
  Transmission Date: 20240109
  Serious: Yes (Hospitalization, Other)
  Sender: FDA-Public Use
  Company Number: 2023A265672

PATIENT
  Age: 52 Year
  Sex: Female

DRUGS (2)
  1. SYMBICORT [Suspect]
     Active Substance: BUDESONIDE\FORMOTEROL FUMARATE DIHYDRATE
     Route: 055
  2. TEZSPIRE [Suspect]
     Active Substance: TEZEPELUMAB-EKKO

REACTIONS (10)
  - Asthma [Unknown]
  - Pleural fibrosis [Unknown]
  - Pleurisy [Unknown]
  - Fall [Unknown]
  - Rib fracture [Unknown]
  - Haematoma [Unknown]
  - Pleural effusion [Unknown]
  - Eosinophilia [Unknown]
  - Forced expiratory volume decreased [Unknown]
  - Drug ineffective [Unknown]
